FAERS Safety Report 6339061-1 (Version None)
Quarter: 2009Q3

REPORT INFORMATION
  Report Type: 
  Country: None (occurrence: None)
  Receive Date: 20090903
  Receipt Date: 20090825
  Transmission Date: 20100115
  Serious: Yes (Death, Other)
  Sender: FDA-Public Use
  Company Number: JP-NAPPMUNDI-MAG-2004-0000274

PATIENT
  Age: 75 Year
  Sex: Male

DRUGS (18)
  1. OXYCODONE HCL [Suspect]
     Indication: CANCER PAIN
     Dosage: 30 UNK, UNK
     Route: 048
     Dates: end: 20040101
  2. OXYCODONE HCL [Suspect]
     Dosage: UNK
     Route: 048
     Dates: start: 20031219
  3. RINDERON                           /00008501/ [Concomitant]
     Dosage: 2 MG, BID
     Route: 065
  4. GASTER D [Concomitant]
     Route: 048
  5. LOXONIN                            /00890702/ [Concomitant]
     Route: 048
  6. SELBEX [Concomitant]
     Route: 048
  7. MYSLEE [Concomitant]
     Route: 048
  8. ASPIRIN [Concomitant]
     Route: 048
  9. DILTIAZEM HYDROCHLORIDE [Concomitant]
     Route: 048
  10. ITOROL [Concomitant]
     Route: 048
  11. NOVAMIN                            /00013301/ [Concomitant]
     Route: 065
  12. MAGNESIUM OXIDE [Concomitant]
     Dosage: UNK
     Route: 048
  13. CARBOPLATIN [Concomitant]
     Indication: LUNG NEOPLASM MALIGNANT
     Dosage: UNK, WEEKLY
     Route: 065
     Dates: start: 20031222
  14. CARBOPLATIN [Concomitant]
     Indication: METASTASES TO CENTRAL NERVOUS SYSTEM
  15. CARBOPLATIN [Concomitant]
     Indication: METASTASES TO BONE
  16. TAXOL [Concomitant]
     Indication: LUNG NEOPLASM MALIGNANT
     Dosage: UNK, WEEKLY
     Route: 065
     Dates: start: 20031222
  17. TAXOL [Concomitant]
     Indication: METASTASES TO BONE
  18. TAXOL [Concomitant]
     Indication: METASTASES TO CENTRAL NERVOUS SYSTEM

REACTIONS (5)
  - DEATH [None]
  - DECREASED APPETITE [None]
  - DEPRESSED LEVEL OF CONSCIOUSNESS [None]
  - ILEUS [None]
  - SEPSIS [None]
